FAERS Safety Report 7956997-6 (Version None)
Quarter: 2011Q4

REPORT INFORMATION
  Report Type: 
  Country: None (occurrence: None)
  Receive Date: 20111205
  Receipt Date: 20111205
  Transmission Date: 20120403
  Serious: Yes (Other)
  Sender: FDA-Public Use
  Company Number: None

PATIENT
  Age: 20 Year
  Sex: Female
  Weight: 54.431 kg

DRUGS (2)
  1. NUVARING [Concomitant]
     Indication: CONTRACEPTION
     Dosage: 0.015 MG RELEASED DAILY
     Route: 067
     Dates: start: 20111105, end: 20111119
  2. NUVARING [Suspect]
     Indication: HEADACHE
     Dosage: 0.015 MG RELEASED DAILY
     Route: 067
     Dates: start: 20090605, end: 20110914

REACTIONS (7)
  - SUICIDAL IDEATION [None]
  - FATIGUE [None]
  - APATHY [None]
  - SELF ESTEEM DECREASED [None]
  - DECREASED APPETITE [None]
  - DEPRESSION [None]
  - HYPOAESTHESIA [None]
